FAERS Safety Report 11290947 (Version 1)
Quarter: 2015Q3

REPORT INFORMATION
  Report Type: Spontaneous
  Country: US (occurrence: US)
  Receive Date: 20150722
  Receipt Date: 20150722
  Transmission Date: 20151125
  Serious: No
  Sender: FDA-Public Use
  Company Number: US-UNITED THERAPEUTICS-UNT-2015-005599

PATIENT
  Sex: Female

DRUGS (2)
  1. REMODULIN [Suspect]
     Active Substance: TREPROSTINIL
     Indication: PULMONARY ARTERIAL HYPERTENSION
     Dosage: 0.0756 ?G/KG/MIN, CONTINUING
     Route: 041
     Dates: start: 20131230
  2. REMODULIN [Suspect]
     Active Substance: TREPROSTINIL
     Indication: PULMONARY HYPERTENSION
     Dosage: 0.0756 ?G/KG/MIN, CONTINUING
     Route: 041
     Dates: start: 201411

REACTIONS (2)
  - Epistaxis [Unknown]
  - Alopecia [Unknown]

NARRATIVE: CASE EVENT DATE: 20150417
